FAERS Safety Report 8473537-6 (Version None)
Quarter: 2012Q2

REPORT INFORMATION
  Report Type: 
  Country: None (occurrence: None)
  Receive Date: 20120622
  Receipt Date: 20120622
  Transmission Date: 20120825
  Serious: Yes (Hospitalization)
  Sender: FDA-Public Use
  Company Number: None

PATIENT
  Sex: Male
  Weight: 85.4 kg

DRUGS (1)
  1. CISPLATIN [Suspect]
     Dosage: 200 MG
     Dates: start: 20120528

REACTIONS (7)
  - HYPERGLYCAEMIA [None]
  - FATIGUE [None]
  - DEHYDRATION [None]
  - NAUSEA [None]
  - BLOOD POTASSIUM INCREASED [None]
  - BLOOD CREATINE INCREASED [None]
  - HYPOPHAGIA [None]
